FAERS Safety Report 24097260 (Version 1)
Quarter: 2024Q3

REPORT INFORMATION
  Report Type: Spontaneous
  Country: US (occurrence: US)
  Receive Date: 20240716
  Receipt Date: 20240716
  Transmission Date: 20241017
  Serious: No
  Sender: FENNEC PHARMACEUTICALS
  Company Number: US-FENNEC PHARMACEUTICALS, INC.-2023FEN00015

PATIENT
  Age: 3 Decade
  Sex: Male

DRUGS (1)
  1. PEDMARK [Suspect]
     Active Substance: SODIUM THIOSULFATE
     Indication: Ototoxicity
     Dosage: UNK

REACTIONS (3)
  - Cough [Unknown]
  - Sneezing [Unknown]
  - Hypersensitivity [Unknown]
